FAERS Safety Report 22605549 (Version 1)
Quarter: 2023Q2

REPORT INFORMATION
  Report Type: Spontaneous
  Country: CZ (occurrence: CZ)
  Receive Date: 20230615
  Receipt Date: 20230615
  Transmission Date: 20230722
  Serious: Yes (Other)
  Sender: FDA-Public Use
  Company Number: CZ-CZSUKL-23002035

PATIENT
  Age: 44 Year
  Sex: Female

DRUGS (1)
  1. AZELASTINE [Suspect]
     Active Substance: AZELASTINE
     Indication: Product used for unknown indication
     Dosage: 0.5 MILLIGRAM PER MILLILITRE
     Route: 065
     Dates: start: 20230421

REACTIONS (4)
  - Suspected product quality issue [Unknown]
  - Eye irritation [Unknown]
  - Ocular discomfort [Unknown]
  - Hypersensitivity [Recovered/Resolved]

NARRATIVE: CASE EVENT DATE: 20230421
